FAERS Safety Report 24113846 (Version 1)
Quarter: 2024Q3

REPORT INFORMATION
  Report Type: Spontaneous
  Country: NL (occurrence: NL)
  Receive Date: 20240720
  Receipt Date: 20240720
  Transmission Date: 20241016
  Serious: Yes (Life-Threatening, Other)
  Sender: AUROBINDO
  Company Number: NL-LRB-00981030

PATIENT
  Age: 22 Year
  Sex: Female
  Weight: 91 kg

DRUGS (1)
  1. PANTOPRAZOLE SODIUM [Suspect]
     Active Substance: PANTOPRAZOLE SODIUM
     Indication: Dyspepsia
     Dosage: 20 MILLIGRAM, ONCE A DAY (FIRST TIME 1 TABLET)
     Route: 065
     Dates: start: 20240529, end: 20240530

REACTIONS (2)
  - Paralysis [Recovered/Resolved]
  - Maternal exposure during pregnancy [Unknown]
